FAERS Safety Report 6329921-X (Version None)
Quarter: 2009Q3

REPORT INFORMATION
  Report Type: 
  Country: None (occurrence: None)
  Receive Date: 20090825
  Receipt Date: 20090813
  Transmission Date: 20100115
  Serious: Yes (Hospitalization)
  Sender: FDA-Public Use
  Company Number: 1000007306

PATIENT
  Age: 93 Year
  Sex: Female

DRUGS (18)
  1. MEMANTINE HCL [Suspect]
     Indication: DEMENTIA ALZHEIMER'S TYPE
     Dosage: 20 MG (20 MG, 1 IN 1 D), ORAL
     Route: 048
     Dates: start: 20090509, end: 20090703
  2. COGNISUR [Concomitant]
  3. ANXIOVITA (DROPS) [Concomitant]
  4. ATENOLOL [Concomitant]
  5. HYDROCHLOROTHIAZIDE [Concomitant]
  6. REMINYL ER (GALANTAMINE) [Concomitant]
  7. ASPIRIN [Concomitant]
  8. VIT D [Concomitant]
  9. DUOTRAV (EYE DROPS) [Concomitant]
  10. BRIMONIDINE (EYE DROPS) [Concomitant]
  11. QUETIAPINE [Concomitant]
  12. CRESTOR [Concomitant]
  13. GNESTRA (CALCIUM MAGNESIUM) (LIQUID) [Concomitant]
  14. NGNATURE PHARM ENZYME [Concomitant]
  15. BIO STRATH YEAST [Concomitant]
  16. HME FORTE [Concomitant]
  17. SUPER NEUROGENA DHA [Concomitant]
  18. RENEEL [Concomitant]

REACTIONS (5)
  - BRADYARRHYTHMIA [None]
  - CONVULSION [None]
  - HYPOKALAEMIA [None]
  - LOSS OF CONSCIOUSNESS [None]
  - MALAISE [None]
